FAERS Safety Report 8499554-8 (Version None)
Quarter: 2012Q3

REPORT INFORMATION
  Report Type: 
  Country: None (occurrence: None)
  Receive Date: 20120710
  Receipt Date: 20120704
  Transmission Date: 20120928
  Serious: Yes (Life-Threatening, Other)
  Sender: FDA-Public Use
  Company Number: FR-ASTRAZENECA-2012SE21599

PATIENT
  Age: 19265 Day
  Sex: Male

DRUGS (5)
  1. ASPIRIN [Suspect]
     Indication: CEREBROVASCULAR ACCIDENT
     Route: 048
  2. DIPIPERON [Suspect]
     Route: 048
  3. DIPRIVAN [Suspect]
     Indication: ANAESTHESIA
     Route: 042
     Dates: start: 20120227, end: 20120227
  4. LIORESAL [Suspect]
     Indication: CEREBROVASCULAR ACCIDENT
  5. DEPAKENE [Suspect]
     Indication: EPILEPSY
     Route: 048
     Dates: end: 20120228

REACTIONS (6)
  - PNEUMONIA [None]
  - SYSTEMIC INFLAMMATORY RESPONSE SYNDROME [None]
  - CIRCULATORY COLLAPSE [None]
  - RESPIRATORY DISTRESS [None]
  - ORGAN FAILURE [None]
  - PANCREATITIS ACUTE [None]
